FAERS Safety Report 8367453-8 (Version None)
Quarter: 2012Q2

REPORT INFORMATION
  Report Type: 
  Country: None (occurrence: None)
  Receive Date: 20120517
  Receipt Date: 20120214
  Transmission Date: 20120825
  Serious: No
  Sender: FDA-Public Use
  Company Number: US-GLAXOSMITHKLINE-A0965887A

PATIENT
  Age: 58 Year
  Sex: Male

DRUGS (4)
  1. STOOL SOFTENER [Concomitant]
  2. VOTRIENT [Suspect]
     Indication: RENAL CANCER
     Dosage: 2TAB TWICE PER DAY
     Route: 048
     Dates: start: 20111101
  3. OMEPRAZOLE [Concomitant]
  4. HYDROCODONE BITARTRATE + ACETAMINOPHEN [Suspect]
     Indication: PAIN
     Dosage: 1TAB AS REQUIRED
     Route: 048
     Dates: start: 20111001

REACTIONS (1)
  - ABDOMINAL DISCOMFORT [None]
